FAERS Safety Report 7812530-0 (Version None)
Quarter: 2011Q4

REPORT INFORMATION
  Report Type: 
  Country: None (occurrence: None)
  Receive Date: 20111013
  Receipt Date: 20111006
  Transmission Date: 20120403
  Serious: No
  Sender: FDA-Public Use
  Company Number: US-PFIZER INC-2011242346

PATIENT
  Age: 77 Year
  Sex: Male

DRUGS (1)
  1. HYDROXYZINE [Suspect]
     Indication: URTICARIA
     Dosage: 30 MG, UNK
     Dates: start: 20110101, end: 20110101

REACTIONS (1)
  - DRUG INEFFECTIVE [None]
